FAERS Safety Report 17718185 (Version 2)
Quarter: 2020Q2

REPORT INFORMATION
  Report Type: Report from Study
  Country: US (occurrence: US)
  Receive Date: 20200428
  Receipt Date: 20200506
  Transmission Date: 20200714
  Serious: Yes (Other)
  Sender: FDA-Public Use
  Company Number: US-PFIZER INC-2020130285

PATIENT
  Age: 61 Year
  Sex: Male

DRUGS (5)
  1. LEVOTHYROXINE. [Concomitant]
     Active Substance: LEVOTHYROXINE
     Indication: HYPOTHYROIDISM
     Dosage: 50 UG, 1X/DAY
     Route: 048
  2. TIZANIDINE. [Concomitant]
     Active Substance: TIZANIDINE
     Indication: PAIN
     Dosage: 8 MG, 4X/DAY (Q (EVERY) 6 HRS)
     Route: 048
  3. SUTENT [Suspect]
     Active Substance: SUNITINIB MALATE
     Dosage: 37.5 MG, DAILY
     Route: 048
     Dates: start: 201911
  4. SUTENT [Suspect]
     Active Substance: SUNITINIB MALATE
     Indication: RENAL CELL CARCINOMA
     Dosage: 37.5 MG, CYCLIC, (DAILY FOR 28 DAYS AND OFF 7 DAYS)
     Route: 048
     Dates: start: 201910
  5. MORPHINE [Concomitant]
     Active Substance: MORPHINE
     Indication: PAIN
     Dosage: 15 MG, 2X/DAY (Q (EVERY)12 HRS)
     Route: 048

REACTIONS (5)
  - Dyspepsia [Recovered/Resolved]
  - Diarrhoea [Unknown]
  - Heart injury [Unknown]
  - Weight increased [Unknown]
  - Therapeutic response unexpected [Unknown]
